FAERS Safety Report 5976652-1 (Version None)
Quarter: 2008Q4

REPORT INFORMATION
  Report Type: 
  Country: None (occurrence: None)
  Receive Date: 20081201
  Receipt Date: 20081201
  Transmission Date: 20090506
  Serious: Yes (Life-Threatening)
  Sender: FDA-Public Use
  Company Number: None

PATIENT
  Age: 80 Year
  Sex: Female
  Weight: 77.1115 kg

DRUGS (1)
  1. AMBIEN CR [Suspect]
     Indication: INSOMNIA
     Dosage: 1 AS NEEDED FOR SLEEP 1 TABLET
     Dates: start: 20081107

REACTIONS (5)
  - AMNESIA [None]
  - CONTUSION [None]
  - FALL [None]
  - HEAD INJURY [None]
  - SKIN LACERATION [None]
